FAERS Safety Report 25890288 (Version 1)
Quarter: 2025Q4

REPORT INFORMATION
  Report Type: Spontaneous
  Country: JP (occurrence: JP)
  Receive Date: 20251007
  Receipt Date: 20251007
  Transmission Date: 20260118
  Serious: Yes (Other)
  Sender: ELI LILLY AND COMPANY
  Company Number: JP-ELI_LILLY_AND_COMPANY-JP202507013783

PATIENT
  Age: 65 Year
  Sex: Male

DRUGS (3)
  1. EBGLYSS [Suspect]
     Active Substance: LEBRIKIZUMAB-LBKZ
     Indication: Product used for unknown indication
     Dosage: UNK, OTHER
     Route: 058
     Dates: start: 20241003, end: 202507
  2. EBGLYSS [Suspect]
     Active Substance: LEBRIKIZUMAB-LBKZ
     Dosage: UNK, OTHER
     Route: 058
  3. EBGLYSS [Suspect]
     Active Substance: LEBRIKIZUMAB-LBKZ
     Dosage: UNK, OTHER
     Route: 058
     Dates: start: 202506

REACTIONS (2)
  - Cutaneous T-cell lymphoma [Unknown]
  - Rash [Recovering/Resolving]

NARRATIVE: CASE EVENT DATE: 20250701
